FAERS Safety Report 6862427-8 (Version None)
Quarter: 2010Q3

REPORT INFORMATION
  Report Type: 
  Country: None (occurrence: None)
  Receive Date: 20100719
  Receipt Date: 20100709
  Transmission Date: 20110219
  Serious: Yes (Hospitalization)
  Sender: FDA-Public Use
  Company Number: 2010SP038171

PATIENT
  Age: 68 Year
  Sex: Male
  Weight: 94 kg

DRUGS (5)
  1. MIRTAZAPINE [Suspect]
     Indication: DEPRESSION
     Dosage: 30 MG;QD;PO
     Route: 048
     Dates: start: 20080301, end: 20100413
  2. VENLAFAXINE HCL [Suspect]
     Indication: DEPRESSION
     Dosage: 75 MG;PO
     Route: 048
     Dates: start: 20080901, end: 20100413
  3. BISPROLOL [Concomitant]
  4. THYRONAJOD 50 HENNING [Concomitant]
  5. CIPRAMILC [Concomitant]

REACTIONS (3)
  - GALLBLADDER CANCER [None]
  - HEPATITIS [None]
  - LIVER DISORDER [None]
